FAERS Safety Report 19828069 (Version 2)
Quarter: 2021Q3

REPORT INFORMATION
  Report Type: Spontaneous
  Country: PL (occurrence: PL)
  Receive Date: 20210914
  Receipt Date: 20210917
  Transmission Date: 20211014
  Serious: Yes (Other)
  Sender: FDA-Public Use
  Company Number: PL-PFIZER INC-202101155024

PATIENT
  Age: 52 Year
  Sex: Female

DRUGS (3)
  1. TAMOXIFEN [Interacting]
     Active Substance: TAMOXIFEN
     Dosage: UNK
  2. CLARITHROMYCIN. [Interacting]
     Active Substance: CLARITHROMYCIN
     Dosage: UNK
  3. ATORVASTATIN CALCIUM. [Suspect]
     Active Substance: ATORVASTATIN CALCIUM
     Dosage: UNK

REACTIONS (2)
  - Drug interaction [Recovered/Resolved]
  - Deafness [Recovered/Resolved]
